FAERS Safety Report 9522010 (Version 1)
Quarter: 2013Q1

REPORT INFORMATION
  Report Type: Spontaneous
  Country: US (occurrence: None)
  Receive Date: 20130305
  Receipt Date: 20130305
  Transmission Date: 20140127
  Serious: Yes (Hospitalization)
  Sender: FDA-Public Use
  Company Number: 163-21880-12031609

PATIENT
  Age: 82 Year
  Sex: Female

DRUGS (4)
  1. REVLIMID (LENALIDOMIDE) (15 MILLIGRAM, CAPSULES) [Suspect]
     Indication: PLASMA CELL MYELOMA
     Route: 048
     Dates: start: 20120225, end: 20120229
  2. LIPITOR [Concomitant]
  3. ASPIRIN [Concomitant]
  4. DEXAMETHASONE [Concomitant]

REACTIONS (2)
  - Pancytopenia [None]
  - Fatigue [None]
